FAERS Safety Report 5485105-9 (Version None)
Quarter: 2007Q4

REPORT INFORMATION
  Report Type: 
  Country: None (occurrence: None)
  Receive Date: 20071015
  Receipt Date: 20071004
  Transmission Date: 20080405
  Serious: Yes (Other)
  Sender: FDA-Public Use
  Company Number: CH-JNJFOC-20070905570

PATIENT
  Age: 73 Year
  Sex: Male

DRUGS (18)
  1. HALDOL [Suspect]
     Route: 048
  2. HALDOL [Suspect]
     Route: 048
  3. HALDOL [Suspect]
     Route: 048
  4. HALDOL [Suspect]
     Indication: DRUG USE FOR UNKNOWN INDICATION
     Route: 048
  5. LITHIUM SULFATE [Concomitant]
     Route: 048
  6. LITHIUM SULFATE [Concomitant]
     Route: 048
  7. LITHIUM SULFATE [Concomitant]
     Route: 048
  8. LITHIUM SULFATE [Concomitant]
     Route: 048
  9. LITHIUM SULFATE [Concomitant]
     Route: 048
  10. SEROQUEL [Concomitant]
     Route: 048
  11. SEROQUEL [Concomitant]
     Route: 048
  12. SEROQUEL [Concomitant]
     Route: 048
  13. SEROQUEL [Concomitant]
     Route: 048
  14. SEROQUEL [Concomitant]
     Route: 048
  15. SEROQUEL [Concomitant]
     Route: 048
  16. SEROQUEL [Concomitant]
     Route: 048
  17. SEROQUEL [Concomitant]
     Route: 048
  18. PANTOPRAZOLE SODIUM [Concomitant]
     Indication: GASTROINTESTINAL DISORDER
     Route: 048

REACTIONS (2)
  - BUNDLE BRANCH BLOCK RIGHT [None]
  - SALIVARY HYPERSECRETION [None]
